FAERS Safety Report 15831424 (Version 1)
Quarter: 2019Q1

REPORT INFORMATION
  Report Type: Spontaneous
  Country: US (occurrence: US)
  Receive Date: 20190116
  Receipt Date: 20190116
  Transmission Date: 20190417
  Serious: Yes (Death)
  Sender: FDA-Public Use
  Company Number: US-INSYS THERAPEUTICS, INC-INS201901-000129

PATIENT
  Age: 31 Year
  Sex: Male

DRUGS (12)
  1. COCAINE [Suspect]
     Active Substance: COCAINE
     Dates: start: 2017
  2. FENTANYL. [Suspect]
     Active Substance: FENTANYL
     Indication: PRODUCT USED FOR UNKNOWN INDICATION
     Route: 048
     Dates: start: 2017
  3. FENTANYL. [Suspect]
     Active Substance: FENTANYL
     Dates: start: 2017
  4. MITRAGYNA SPECIOSA KORTHALS [Suspect]
     Active Substance: HERBALS\MITRAGYNINE
     Dates: start: 2017
  5. CLONAZEPAM. [Suspect]
     Active Substance: CLONAZEPAM
     Route: 048
     Dates: start: 2017
  6. ALPRAZOLAM. [Suspect]
     Active Substance: ALPRAZOLAM
     Dates: start: 2017
  7. COCAINE [Suspect]
     Active Substance: COCAINE
     Route: 048
     Dates: start: 2017
  8. DIPHENHYDRAMINE. [Suspect]
     Active Substance: DIPHENHYDRAMINE
     Route: 048
     Dates: start: 2017
  9. CLONAZEPAM. [Suspect]
     Active Substance: CLONAZEPAM
     Dates: start: 2017
  10. ALPRAZOLAM. [Suspect]
     Active Substance: ALPRAZOLAM
     Route: 048
     Dates: start: 2017
  11. DIPHENHYDRAMINE. [Suspect]
     Active Substance: DIPHENHYDRAMINE
     Dates: start: 2017
  12. MITRAGYNA SPECIOSA KORTHALS [Suspect]
     Active Substance: HERBALS\MITRAGYNINE
     Route: 048
     Dates: start: 2017

REACTIONS (2)
  - Incorrect route of product administration [Unknown]
  - Cardio-respiratory arrest [Fatal]

NARRATIVE: CASE EVENT DATE: 2017
